FAERS Safety Report 4611851-2 (Version None)
Quarter: 2005Q2

REPORT INFORMATION
  Report Type: 
  Country: None (occurrence: None)
  Receive Date: 20050308
  Receipt Date: 20050118
  Transmission Date: 20051028
  Serious: Yes (Other)
  Sender: FDA-Public Use
  Company Number: 2005UW00919

PATIENT
  Age: 83 Year
  Sex: Female
  Weight: 81.646 kg

DRUGS (7)
  1. CRESTOR [Suspect]
     Indication: BLOOD CHOLESTEROL INCREASED
     Dosage: 10 MG PO
     Route: 048
     Dates: start: 20041201
  2. ALLOPURINOL [Concomitant]
  3. POTASSIUM CHLORIDE [Concomitant]
  4. THYROID TAB [Concomitant]
  5. INDAPAMIDE [Concomitant]
  6. ASPIRIN [Concomitant]
  7. BLOOD PRESSURE MEDICATION [Concomitant]

REACTIONS (4)
  - BALANCE DISORDER [None]
  - BONE PAIN [None]
  - MYALGIA [None]
  - STOMACH DISCOMFORT [None]
